FAERS Safety Report 18282094 (Version 2)
Quarter: 2020Q4

REPORT INFORMATION
  Report Type: Spontaneous
  Country: FR (occurrence: FR)
  Receive Date: 20200918
  Receipt Date: 20201005
  Transmission Date: 20210113
  Serious: Yes (Other)
  Sender: FDA-Public Use
  Company Number: FR-MYLANLABS-2020M1079311

PATIENT
  Age: 32 Year
  Sex: Female

DRUGS (1)
  1. BUPIVACAINE MYLAN 20 MG/4 ML, SPINAL INJECTION [Suspect]
     Active Substance: BUPIVACAINE
     Indication: ABSCESS MANAGEMENT
     Dosage: UNK

REACTIONS (1)
  - Drug ineffective [Unknown]
